FAERS Safety Report 11480935 (Version 1)
Quarter: 2015Q3

REPORT INFORMATION
  Report Type: Spontaneous
  Country: JP (occurrence: JP)
  Receive Date: 20150909
  Receipt Date: 20150909
  Transmission Date: 20151125
  Serious: Yes (Hospitalization)
  Sender: FDA-Public Use
  Company Number: JP-JNJFOC-20150903746

PATIENT
  Age: 65 Year
  Sex: Female
  Weight: 48 kg

DRUGS (11)
  1. ASTOMIN [Concomitant]
     Active Substance: DIMEMORFAN
     Indication: PRODUCT USED FOR UNKNOWN INDICATION
     Route: 048
  2. PERORIC [Concomitant]
     Indication: PRODUCT USED FOR UNKNOWN INDICATION
     Route: 048
     Dates: end: 20140415
  3. SENNOSIDE [Concomitant]
     Active Substance: SENNOSIDES
     Indication: PRODUCT USED FOR UNKNOWN INDICATION
     Route: 048
  4. CARBOPLATIN. [Concomitant]
     Active Substance: CARBOPLATIN
     Indication: NON-SMALL CELL LUNG CANCER
     Route: 065
  5. WYPAX [Suspect]
     Active Substance: LORAZEPAM
     Indication: PRODUCT USED FOR UNKNOWN INDICATION
     Dosage: 2 PER 1 DAY
     Route: 048
     Dates: start: 20140409, end: 20140415
  6. NEXIUM [Concomitant]
     Active Substance: ESOMEPRAZOLE MAGNESIUM
     Indication: PRODUCT USED FOR UNKNOWN INDICATION
     Route: 048
  7. TRAMCET [Suspect]
     Active Substance: ACETAMINOPHEN\TRAMADOL
     Indication: PRODUCT USED FOR UNKNOWN INDICATION
     Dosage: 1 PER 1 DAY
     Route: 048
     Dates: end: 20140415
  8. MAGLAX [Concomitant]
     Active Substance: MAGNESIUM OXIDE
     Indication: PRODUCT USED FOR UNKNOWN INDICATION
     Route: 048
     Dates: end: 20140422
  9. LECICARBON [Concomitant]
     Active Substance: SODIUM BICARBONATE\SODIUM PHOSPHATE, MONOBASIC
     Indication: PRODUCT USED FOR UNKNOWN INDICATION
     Route: 054
     Dates: start: 20140412
  10. ANOLEXINON [Concomitant]
     Indication: PRODUCT USED FOR UNKNOWN INDICATION
     Route: 048
     Dates: end: 20140415
  11. PEMETREXED DISODIUM [Concomitant]
     Active Substance: PEMETREXED DISODIUM
     Indication: NON-SMALL CELL LUNG CANCER
     Route: 065

REACTIONS (1)
  - Ileus [Recovering/Resolving]

NARRATIVE: CASE EVENT DATE: 20140414
